FAERS Safety Report 5254731-4 (Version None)
Quarter: 2007Q1

REPORT INFORMATION
  Report Type: 
  Country: None (occurrence: None)
  Receive Date: 20070228
  Receipt Date: 20070226
  Transmission Date: 20070707
  Serious: Yes (Hospitalization)
  Sender: FDA-Public Use
  Company Number: AE-207-063

PATIENT
  Age: 62 Year
  Sex: Female

DRUGS (6)
  1. LIDODERM [Suspect]
     Indication: MUSCLE INJURY
     Dosage: 1 OR 2 PATCHES A DAY
  2. VERAPAMIL [Concomitant]
  3. PAXIL [Concomitant]
  4. LASIX [Concomitant]
  5. OXYBUTYNIN CHLORIDE [Concomitant]
  6. NEXIUM [Concomitant]

REACTIONS (1)
  - HYPERTENSION [None]
